FAERS Safety Report 9462830 (Version 1)
Quarter: 2013Q3

REPORT INFORMATION
  Report Type: Report from Study
  Country: CN (occurrence: CN)
  Receive Date: 20130816
  Receipt Date: 20130816
  Transmission Date: 20140515
  Serious: Yes (Other)
  Sender: FDA-Public Use
  Company Number: CN-BAXTER-2013BAX031902

PATIENT
  Sex: Female

DRUGS (8)
  1. QIFUMEI [Suspect]
     Indication: INDUCTION OF ANAESTHESIA
     Dosage: 2-3 % END-TITAL CONCENTRATION
     Route: 065
  2. QIFUMEI [Suspect]
     Indication: MAINTENANCE OF ANAESTHESIA
  3. FENTANYL [Suspect]
     Indication: INDUCTION OF ANAESTHESIA
     Dosage: 4 MCS/KG FOR INDUCTION
     Route: 065
  4. FENTANYL [Suspect]
     Indication: MAINTENANCE OF ANAESTHESIA
     Dosage: 1-2 MICROGRAMS/KG/H
     Route: 065
  5. MIDAZOLAM [Suspect]
     Indication: INDUCTION OF ANAESTHESIA
     Route: 065
  6. PROPOFOL [Suspect]
     Indication: INDUCTION OF ANAESTHESIA
     Route: 065
  7. ROCURONIUM [Suspect]
     Indication: ANAESTHESIA
     Route: 065
  8. CISATRACURIUM [Suspect]
     Indication: MAINTENANCE OF ANAESTHESIA
     Dosage: 1-2 MICROGRAMS/KG/H
     Route: 065

REACTIONS (1)
  - Haemorrhage [Unknown]
